FAERS Safety Report 17444903 (Version 1)
Quarter: 2020Q1

REPORT INFORMATION
  Report Type: Spontaneous
  Country: DE (occurrence: DE)
  Receive Date: 20200221
  Receipt Date: 20200221
  Transmission Date: 20200409
  Serious: Yes (Other)
  Sender: FDA-Public Use
  Company Number: DE-TEVA-2020-DE-1186520

PATIENT
  Age: 18 Year
  Sex: Female

DRUGS (3)
  1. CARBOPLATIN. [Suspect]
     Active Substance: CARBOPLATIN
     Indication: ALVEOLAR RHABDOMYOSARCOMA
     Dosage: ADMINISTERED ON DAYS 1 AND 3 AT 50% OF THE ORIGINAL DOSE OF THE ICE REGIMEN
     Route: 065
     Dates: start: 201101
  2. ETOPOSIDE. [Suspect]
     Active Substance: ETOPOSIDE
     Indication: ALVEOLAR RHABDOMYOSARCOMA
     Dosage: ADMINISTERED ON DAYS 1 AND 3 AT 50% OF THE ORIGINAL DOSE OF THE ICE REGIMEN
     Route: 065
     Dates: start: 201101
  3. IFOSFAMIDE. [Suspect]
     Active Substance: IFOSFAMIDE
     Indication: ALVEOLAR RHABDOMYOSARCOMA
     Dosage: DOSE: 1.5G/M2; ADMINISTERED ON DAYS 1 AND 3 AT 50% OF THE ORIGINAL DOSE OF THE ICE REGIMEN
     Route: 065
     Dates: start: 201101

REACTIONS (1)
  - Erythema [Recovering/Resolving]
